FAERS Safety Report 24767897 (Version 2)
Quarter: 2024Q4

REPORT INFORMATION
  Report Type: Spontaneous
  Country: US (occurrence: US)
  Receive Date: 20241223
  Receipt Date: 20241223
  Transmission Date: 20250114
  Serious: Yes (Death, Congenital Anomaly)
  Sender: PFIZER
  Company Number: US-BioHaven Pharmaceuticals-2022BHV001624

PATIENT

DRUGS (1)
  1. NURTEC ODT [Suspect]
     Active Substance: RIMEGEPANT SULFATE
     Indication: Migraine

REACTIONS (2)
  - Maternal exposure during pregnancy [Fatal]
  - Foetal chromosome abnormality [Fatal]

NARRATIVE: CASE EVENT DATE: 20220302
